FAERS Safety Report 19005932 (Version 1)
Quarter: 2021Q1

REPORT INFORMATION
  Report Type: Spontaneous
  Country: US (occurrence: US)
  Receive Date: 20210314
  Receipt Date: 20210314
  Transmission Date: 20210420
  Serious: Yes (Life-Threatening, Hospitalization)
  Sender: FDA-Public Use
  Company Number: US-TEVA-2021-US-1887765

PATIENT
  Age: 42 Year
  Sex: Female

DRUGS (3)
  1. CYCLOSPORINE. [Suspect]
     Active Substance: CYCLOSPORINE
     Indication: GRAFT VERSUS HOST DISEASE
     Route: 065
  2. MYCOPHENOLATE MOFETIL. [Suspect]
     Active Substance: MYCOPHENOLATE MOFETIL
     Indication: GRAFT VERSUS HOST DISEASE
     Route: 065
  3. TACROLIMUS. [Suspect]
     Active Substance: TACROLIMUS
     Indication: GRAFT VERSUS HOST DISEASE
     Route: 065

REACTIONS (7)
  - Pharyngeal necrosis [Recovering/Resolving]
  - Pneumococcal sepsis [Recovering/Resolving]
  - Purpura fulminans [Recovering/Resolving]
  - Autoimmune haemolytic anaemia [Recovering/Resolving]
  - Thrombotic thrombocytopenic purpura [Recovering/Resolving]
  - Pneumonia pneumococcal [Recovering/Resolving]
  - Nasal necrosis [Recovering/Resolving]
